FAERS Safety Report 18120991 (Version 3)
Quarter: 2021Q1

REPORT INFORMATION
  Report Type: Report from Study
  Country: US (occurrence: US)
  Receive Date: 20200806
  Receipt Date: 20210330
  Transmission Date: 20210419
  Serious: No
  Sender: FDA-Public Use
  Company Number: NVSC2020US218225

PATIENT
  Age: 49 Year
  Sex: Female

DRUGS (2)
  1. GILENYA [Suspect]
     Active Substance: FINGOLIMOD HYDROCHLORIDE
     Dosage: 0.5 MG, QD
     Route: 048
     Dates: start: 20200830
  2. GILENYA [Suspect]
     Active Substance: FINGOLIMOD HYDROCHLORIDE
     Indication: MULTIPLE SCLEROSIS
     Dosage: 0.5 MG, QD
     Route: 048
     Dates: start: 20200803, end: 20200803

REACTIONS (3)
  - Product dose omission issue [Recovered/Resolved]
  - Headache [Recovered/Resolved]
  - Nervousness [Unknown]

NARRATIVE: CASE EVENT DATE: 20200803
